FAERS Safety Report 17723786 (Version 1)
Quarter: 2020Q2

REPORT INFORMATION
  Report Type: Spontaneous
  Country: US (occurrence: US)
  Receive Date: 20200429
  Receipt Date: 20200429
  Transmission Date: 20200714
  Serious: No
  Sender: FDA-Public Use
  Company Number: None

PATIENT
  Age: 71 Year
  Sex: Female
  Weight: 60.12 kg

DRUGS (23)
  1. CAPECITABINE. [Suspect]
     Active Substance: CAPECITABINE
     Indication: BREAST CANCER
     Route: 048
     Dates: start: 20200413
  2. ACYCLOVIR. [Concomitant]
     Active Substance: ACYCLOVIR
  3. TRAMADOL. [Concomitant]
     Active Substance: TRAMADOL
  4. VITAMIN C [Concomitant]
     Active Substance: ASCORBIC ACID
  5. BERBERINE [Concomitant]
     Active Substance: BERBERINE
  6. CALCIUM [Concomitant]
     Active Substance: CALCIUM
  7. COQ10 [Concomitant]
     Active Substance: UBIDECARENONE
  8. LIVAPLEX [Concomitant]
  9. IODINE. [Concomitant]
     Active Substance: IODINE
  10. LIPASE [Concomitant]
     Active Substance: LIPASE
  11. MAGNESIUM CITRATE. [Concomitant]
     Active Substance: MAGNESIUM CITRATE
  12. METHYL B12 [Concomitant]
     Active Substance: METHYLCOBALAMIN
  13. MVI [Concomitant]
     Active Substance: VITAMINS
  14. TURMERIC [Concomitant]
     Active Substance: HERBALS\TURMERIC
  15. GRAPESEED EXTRACT [Concomitant]
  16. FLAXSEED [Concomitant]
     Active Substance: FLAX SEED
  17. TYKERB [Suspect]
     Active Substance: LAPATINIB DITOSYLATE
     Indication: BREAST CANCER
     Route: 048
     Dates: start: 20200413
  18. LETROZOLE. [Concomitant]
     Active Substance: LETROZOLE
  19. LYSINE [Concomitant]
     Active Substance: LYSINE
  20. RNA [Concomitant]
  21. CBD OIL [Concomitant]
     Active Substance: CANNABIDIOL\HERBALS
  22. MILK THISTLE [Concomitant]
     Active Substance: DIETARY SUPPLEMENT\HERBALS\MILK THISTLE
  23. PROBIOTICS [Concomitant]
     Active Substance: PROBIOTICS NOS

REACTIONS (1)
  - Lip blister [None]

NARRATIVE: CASE EVENT DATE: 20200429
